FAERS Safety Report 4674382-X (Version None)
Quarter: 2005Q2

REPORT INFORMATION
  Report Type: 
  Country: None (occurrence: None)
  Receive Date: 20050524
  Receipt Date: 20050510
  Transmission Date: 20051028
  Serious: Yes (Other)
  Sender: FDA-Public Use
  Company Number: USA050597759

PATIENT
  Age: 58 Year
  Sex: Female

DRUGS (1)
  1. FORTEO [Suspect]

REACTIONS (3)
  - ANTINUCLEAR ANTIBODY POSITIVE [None]
  - BLOOD HUMAN CHORIONIC GONADOTROPIN POSITIVE [None]
  - HIV TEST POSITIVE [None]
